FAERS Safety Report 24756247 (Version 1)
Quarter: 2024Q4

REPORT INFORMATION
  Report Type: Spontaneous
  Country: US (occurrence: US)
  Receive Date: 20241220
  Receipt Date: 20241220
  Transmission Date: 20250114
  Serious: No
  Sender: UNITED THERAPEUTICS
  Company Number: US-UNITED THERAPEUTICS-UNT-2024-030549

PATIENT
  Sex: Female

DRUGS (11)
  1. TYVASO DPI [Suspect]
     Active Substance: TREPROSTINIL
     Indication: Pulmonary arterial hypertension
     Dosage: 16 ?G, QID
     Dates: start: 20240924, end: 20241021
  2. TYVASO DPI [Suspect]
     Active Substance: TREPROSTINIL
     Indication: Pulmonary arterial hypertension
     Dosage: UNK
  3. TYVASO DPI [Suspect]
     Active Substance: TREPROSTINIL
     Indication: Pulmonary arterial hypertension
     Dosage: UNK
  4. TYVASO DPI [Suspect]
     Active Substance: TREPROSTINIL
     Indication: Pulmonary arterial hypertension
     Dosage: UNK
  5. ALBUTEROL [Suspect]
     Active Substance: ALBUTEROL
     Indication: Product used for unknown indication
     Dosage: UNK
  6. OFEV [Suspect]
     Active Substance: NINTEDANIB
     Indication: Idiopathic pulmonary fibrosis
     Dosage: 100 MG, BID
     Dates: start: 202402
  7. OFEV [Suspect]
     Active Substance: NINTEDANIB
     Dosage: UNK
  8. OFEV [Suspect]
     Active Substance: NINTEDANIB
     Dosage: UNK
  9. OFEV [Suspect]
     Active Substance: NINTEDANIB
     Dosage: 150 MG, BID
     Dates: start: 20240217
  10. OFEV [Suspect]
     Active Substance: NINTEDANIB
     Dosage: UNK
  11. IBUPROFEN [Concomitant]
     Active Substance: IBUPROFEN
     Indication: Pulmonary pain
     Dosage: UNK

REACTIONS (11)
  - Headache [Unknown]
  - Oropharyngeal pain [Unknown]
  - Pyrexia [Unknown]
  - Poor quality sleep [Unknown]
  - Condition aggravated [Unknown]
  - Influenza like illness [Unknown]
  - Dyspnoea [Not Recovered/Not Resolved]
  - Fatigue [Unknown]
  - Asthenia [Unknown]
  - Cough [Not Recovered/Not Resolved]
  - Dyspnoea exertional [Not Recovered/Not Resolved]

NARRATIVE: CASE EVENT DATE: 20240101
